FAERS Safety Report 6648102-3 (Version None)
Quarter: 2010Q1

REPORT INFORMATION
  Report Type: 
  Country: None (occurrence: None)
  Receive Date: 20100319
  Receipt Date: 20100309
  Transmission Date: 20100710
  Serious: Yes (Hospitalization)
  Sender: FDA-Public Use
  Company Number: 1000008300

PATIENT
  Age: 57 Year
  Sex: Female
  Weight: 94.575 kg

DRUGS (11)
  1. MILNACIPRAN (OPEN-LABEL) (MILNACIPRAN HYDROCHLORIDE) [Suspect]
     Indication: FIBROMYALGIA
     Dosage: 200 MG, ORAL
     Route: 048
     Dates: start: 20080519
  2. BACTRIM [Suspect]
     Indication: SWEAT GLAND INFECTION
     Dates: start: 20090701, end: 20090701
  3. PRILOSEC [Concomitant]
  4. SPIRIVA [Concomitant]
  5. ADVAIR DISKUS 100/50 [Concomitant]
  6. YAZ [Concomitant]
  7. XOPENEX [Concomitant]
  8. ALBUTEROL [Concomitant]
  9. VICODIN [Concomitant]
  10. FLEXERIL [Concomitant]
  11. LEVOTHYROXINE SODIUM [Concomitant]

REACTIONS (10)
  - ANGIOEDEMA [None]
  - BLOOD CREATININE INCREASED [None]
  - BLOOD PRESSURE SYSTOLIC INCREASED [None]
  - BLOOD UREA INCREASED [None]
  - CREATININE RENAL CLEARANCE DECREASED [None]
  - GLOMERULAR FILTRATION RATE DECREASED [None]
  - HEART RATE DECREASED [None]
  - MUSCLE SPASMS [None]
  - RESPIRATORY RATE INCREASED [None]
  - SWEAT GLAND INFECTION [None]
